FAERS Safety Report 6486160-X (Version None)
Quarter: 2009Q4

REPORT INFORMATION
  Report Type: 
  Country: None (occurrence: None)
  Receive Date: 20091207
  Receipt Date: 20091130
  Transmission Date: 20100525
  Serious: Yes (Death)
  Sender: FDA-Public Use
  Company Number: 8053751

PATIENT
  Age: 36 Year
  Sex: Female

DRUGS (2)
  1. CIMZIA [Suspect]
     Dosage: 400 MG SC
     Route: 058
  2. LIVE NASAL INFLUENZA VACCINE [Suspect]
     Dosage: NAS
     Route: 045

REACTIONS (1)
  - TREATMENT NONCOMPLIANCE [None]
